FAERS Safety Report 23841615 (Version 2)
Quarter: 2024Q2

REPORT INFORMATION
  Report Type: Spontaneous
  Country: BR (occurrence: BR)
  Receive Date: 20240510
  Receipt Date: 20240618
  Transmission Date: 20240715
  Serious: Yes (Other)
  Sender: FDA-Public Use
  Company Number: BR-Accord-423112

PATIENT
  Age: 24 Year
  Sex: Female

DRUGS (1)
  1. PACLITAXEL [Suspect]
     Active Substance: PACLITAXEL
     Indication: Thymic carcinoma
     Dosage: 21.9 ML
     Route: 042
     Dates: start: 20240209

REACTIONS (5)
  - Nausea [Recovered/Resolved]
  - Paraesthesia [Recovered/Resolved]
  - Hyperaemia [Recovered/Resolved]
  - Ear discomfort [Recovered/Resolved]
  - Off label use [Unknown]

NARRATIVE: CASE EVENT DATE: 20240209
